FAERS Safety Report 16597319 (Version 1)
Quarter: 2019Q3

REPORT INFORMATION
  Report Type: Spontaneous
  Country: US (occurrence: US)
  Receive Date: 20190719
  Receipt Date: 20190719
  Transmission Date: 20191004
  Serious: Yes (Other)
  Sender: FDA-Public Use
  Company Number: US-ASTRAZENECA-2019SE96010

PATIENT
  Age: 638 Month
  Sex: Male

DRUGS (5)
  1. PREDNISONE. [Concomitant]
     Active Substance: PREDNISONE
     Dates: start: 201905
  2. FASENRA [Suspect]
     Active Substance: BENRALIZUMAB
     Indication: NASAL POLYPS
     Route: 058
     Dates: start: 201805
  3. FASENRA [Suspect]
     Active Substance: BENRALIZUMAB
     Indication: ASTHMA
     Route: 058
     Dates: start: 201805
  4. FASENRA [Suspect]
     Active Substance: BENRALIZUMAB
     Indication: ASTHMA
     Route: 058
     Dates: start: 201811
  5. FASENRA [Suspect]
     Active Substance: BENRALIZUMAB
     Indication: NASAL POLYPS
     Route: 058
     Dates: start: 201811

REACTIONS (4)
  - Peripheral swelling [Recovered/Resolved]
  - Therapeutic response decreased [Unknown]
  - Sinus disorder [Recovered/Resolved]
  - Sinusitis [Recovered/Resolved]

NARRATIVE: CASE EVENT DATE: 201905
